FAERS Safety Report 12867455 (Version 1)
Quarter: 2016Q4

REPORT INFORMATION
  Report Type: Spontaneous
  Country: US (occurrence: US)
  Receive Date: 20161020
  Receipt Date: 20161020
  Transmission Date: 20170207
  Serious: No
  Sender: FDA-Public Use
  Company Number: US-009507513-1610USA004902

PATIENT
  Age: 18 Year
  Sex: Female
  Weight: 68.03 kg

DRUGS (1)
  1. NUVARING [Suspect]
     Active Substance: ETHINYL ESTRADIOL\ETONOGESTREL
     Indication: CONTRACEPTION
     Dosage: UNK
     Route: 067
     Dates: start: 201608, end: 20161009

REACTIONS (6)
  - Acne [Recovering/Resolving]
  - Amenorrhoea [Recovered/Resolved]
  - Incorrect drug administration duration [Unknown]
  - Incorrect drug administration duration [Unknown]
  - Incorrect drug administration duration [Unknown]
  - Withdrawal bleed [Unknown]

NARRATIVE: CASE EVENT DATE: 201608
